FAERS Safety Report 9031568 (Version 9)
Quarter: 2013Q2

REPORT INFORMATION
  Report Type: Report from Study
  Country: HU (occurrence: HU)
  Receive Date: 20130124
  Receipt Date: 20130517
  Transmission Date: 20140414
  Serious: Yes (Death, Life-Threatening, Hospitalization)
  Sender: FDA-Public Use
  Company Number: HU-SANOFI-AVENTIS-2012SA095937

PATIENT
  Age: 56 Year
  Sex: Male
  Weight: 94 kg

DRUGS (8)
  1. CABAZITAXEL [Suspect]
     Indication: SMALL CELL LUNG CANCER
     Route: 042
     Dates: start: 20121217, end: 20121217
  2. VEROSPIRON [Concomitant]
     Route: 048
     Dates: start: 20121211
  3. FURON [Concomitant]
     Route: 048
     Dates: start: 20121211
  4. RELAXIL [Concomitant]
     Route: 048
     Dates: start: 20121213, end: 20121213
  5. NEODOLPASSE [Concomitant]
     Route: 048
     Dates: start: 20121213, end: 20121213
  6. MYDETON [Concomitant]
     Route: 048
     Dates: start: 20121213
  7. DOLO-ADAMON [Concomitant]
     Route: 048
     Dates: start: 20121213
  8. DICLOFENAC [Concomitant]
     Route: 023
     Dates: start: 20121213

REACTIONS (4)
  - Thrombocytopenia [Not Recovered/Not Resolved]
  - Anal haemorrhage [Not Recovered/Not Resolved]
  - Neutropenia [Not Recovered/Not Resolved]
  - Hypokalaemia [Fatal]
